FAERS Safety Report 16745733 (Version 1)
Quarter: 2019Q3

REPORT INFORMATION
  Report Type: Spontaneous
  Country: US (occurrence: US)
  Receive Date: 20190709
  Receipt Date: 20190709
  Transmission Date: 20191005
  Serious: No
  Sender: FDA-Public Use
  Company Number: None

PATIENT
  Age: 38 Year
  Sex: Female

DRUGS (4)
  1. GANIRELIX [Suspect]
     Active Substance: GANIRELIX
     Indication: INFERTILITY
     Route: 058
     Dates: start: 20190401
  2. FOLLISTIM [Suspect]
     Active Substance: FOLLITROPIN
     Indication: INFERTILITY
     Route: 058
     Dates: start: 20190321
  3. ESTRADIOL. [Concomitant]
     Active Substance: ESTRADIOL
  4. LEVOTHYROXIN [Concomitant]
     Active Substance: LEVOTHYROXINE

REACTIONS (1)
  - Mass [None]
